FAERS Safety Report 7625205-8 (Version None)
Quarter: 2011Q3

REPORT INFORMATION
  Report Type: 
  Country: None (occurrence: None)
  Receive Date: 20110721
  Receipt Date: 20110713
  Transmission Date: 20111222
  Serious: Yes (Hospitalization, Other)
  Sender: FDA-Public Use
  Company Number: PL-AMGEN-POLSP2011023499

PATIENT
  Age: 37 Year
  Sex: Male
  Weight: 99.5 kg

DRUGS (6)
  1. METYPRED                           /00049601/ [Concomitant]
     Dosage: 12 MG, UNK
     Route: 048
  2. ENBREL [Suspect]
     Dosage: 50 SC/WEEK
     Route: 058
     Dates: start: 20110629
  3. PRAMOLAN [Concomitant]
     Dosage: ONE TABLET 2X/DAY
  4. OLFEN                              /00372302/ [Concomitant]
     Dosage: 100 MG, UNK
     Route: 048
  5. ENBREL [Suspect]
     Indication: RHEUMATOID ARTHRITIS
     Dosage: 50 MG, QWK
     Dates: start: 20090224, end: 20110401
  6. BISOCARD [Concomitant]
     Dosage: 2.5 MG, UNK

REACTIONS (4)
  - RHEUMATOID ARTHRITIS [None]
  - CHRONIC MYELOID LEUKAEMIA [None]
  - HEPATIC STEATOSIS [None]
  - LEUKOCYTOSIS [None]
